FAERS Safety Report 4320739-6 (Version None)
Quarter: 2004Q1

REPORT INFORMATION
  Report Type: 
  Country: None (occurrence: None)
  Receive Date: 20040315
  Receipt Date: 20031124
  Transmission Date: 20041129
  Serious: No
  Sender: FDA-Public Use
  Company Number: 2003176835US

PATIENT
  Age: 88 Year
  Sex: Female
  Weight: 54.4 kg

DRUGS (4)
  1. BEXTRA [Suspect]
     Indication: ARTHRITIS
     Dosage: 20 MG, QD
     Dates: start: 20030816, end: 20030817
  2. ZESTRIL [Concomitant]
  3. ACCOLATE [Concomitant]
  4. MYSOLINE [Concomitant]

REACTIONS (5)
  - ANAEMIA [None]
  - GASTROENTERITIS [None]
  - NAUSEA [None]
  - OEDEMA PERIPHERAL [None]
  - VISUAL ACUITY REDUCED [None]
